FAERS Safety Report 5137321-3 (Version None)
Quarter: 2006Q4

REPORT INFORMATION
  Report Type: 
  Country: None (occurrence: None)
  Receive Date: 20061030
  Receipt Date: 20051011
  Transmission Date: 20070319
  Serious: No
  Sender: FDA-Public Use
  Company Number: US-GLAXOSMITHKLINE-A0577825A

PATIENT
  Age: 76 Year
  Sex: Male

DRUGS (7)
  1. ADVAIR HFA [Suspect]
     Indication: DRUG USE FOR UNKNOWN INDICATION
     Dosage: 1PUFF TWICE PER DAY
     Route: 055
     Dates: start: 20051008
  2. REGLAN [Concomitant]
  3. WARFARIN SODIUM [Concomitant]
  4. CARAFATE [Concomitant]
  5. ATENOLOL [Concomitant]
  6. LOVASTATIN [Concomitant]
  7. ZOFRAN [Concomitant]

REACTIONS (2)
  - DRUG INEFFECTIVE [None]
  - PHARMACEUTICAL PRODUCT COMPLAINT [None]
